FAERS Safety Report 8043764-0 (Version None)
Quarter: 2012Q1

REPORT INFORMATION
  Report Type: 
  Country: None (occurrence: None)
  Receive Date: 20120113
  Receipt Date: 20120106
  Transmission Date: 20120608
  Serious: Yes (Other)
  Sender: FDA-Public Use
  Company Number: US-BIOGENIDEC-2012BI001004

PATIENT
  Sex: Female

DRUGS (1)
  1. AVONEX [Suspect]
     Indication: EXPOSURE VIA FATHER
     Dates: start: 20101106

REACTIONS (1)
  - THROMBOSIS [None]
